FAERS Safety Report 18410549 (Version 2)
Quarter: 2021Q1

REPORT INFORMATION
  Report Type: Spontaneous
  Country: US (occurrence: US)
  Receive Date: 20201021
  Receipt Date: 20210209
  Transmission Date: 20210419
  Serious: No
  Sender: FDA-Public Use
  Company Number: US-PFIZER INC-2020405297

PATIENT
  Age: 69 Year
  Sex: Female

DRUGS (1)
  1. DUAVEE [Suspect]
     Active Substance: BAZEDOXIFENE ACETATE\ESTROGENS, CONJUGATED
     Indication: ENDOMETRIAL HYPERPLASIA
     Dosage: UNK

REACTIONS (6)
  - Illness [Unknown]
  - Nausea [Unknown]
  - Therapeutic response unexpected [Unknown]
  - Depression [Unknown]
  - Vaginal haemorrhage [Unknown]
  - Off label use [Unknown]
